FAERS Safety Report 5778972-2 (Version None)
Quarter: 2008Q2

REPORT INFORMATION
  Report Type: 
  Country: None (occurrence: None)
  Receive Date: 20080613
  Receipt Date: 20080304
  Transmission Date: 20081010
  Serious: Yes (Other)
  Sender: FDA-Public Use
  Company Number: 430018J08USA

PATIENT
  Age: 46 Year
  Sex: Female

DRUGS (6)
  1. NOVANTRONE [Suspect]
     Indication: MULTIPLE SCLEROSIS
     Dates: start: 20060327
  2. BETASERON (INTERFERON BETA) [Suspect]
     Indication: SECONDARY PROGRESSIVE MULTIPLE SCLEROSIS
     Dosage: 8000000 IU, 1 IN 2 DAYS, SUBCUTANEOUS
     Route: 058
     Dates: start: 20031117
  3. PROVIGIL [Concomitant]
  4. CYMBALTA [Concomitant]
  5. CELEXA [Concomitant]
  6. ORTHO-CYCLEN (CILEST) [Concomitant]

REACTIONS (15)
  - ASTHENIA [None]
  - BLOOD PRESSURE INCREASED [None]
  - BONE PAIN [None]
  - EJECTION FRACTION DECREASED [None]
  - FATIGUE [None]
  - MITRAL VALVE INCOMPETENCE [None]
  - MULTIPLE SCLEROSIS RELAPSE [None]
  - MUSCLE TIGHTNESS [None]
  - NAUSEA [None]
  - PALPITATIONS [None]
  - PULMONARY HYPERTENSION [None]
  - PYREXIA [None]
  - SENSATION OF HEAVINESS [None]
  - VERTIGO [None]
  - VISUAL DISTURBANCE [None]
